FAERS Safety Report 8477393-1 (Version None)
Quarter: 2012Q2

REPORT INFORMATION
  Report Type: 
  Country: None (occurrence: None)
  Receive Date: 20120629
  Receipt Date: 20120621
  Transmission Date: 20120825
  Serious: Yes (Hospitalization)
  Sender: FDA-Public Use
  Company Number: AU-B.I. PHARMACEUTICALS,INC./RIDGEFIELD-2012-AU-00998AU

PATIENT
  Sex: Male
  Weight: 90 kg

DRUGS (12)
  1. PRADAXA [Suspect]
     Indication: ATRIAL FIBRILLATION
     Dates: start: 20110707, end: 20111101
  2. OXYCONTIN SR [Concomitant]
     Dosage: 5 MG
  3. BISOPROLOL FUMARATE [Suspect]
     Dosage: 5 MG
     Dates: start: 20070101
  4. PERINDOPRIL ERBUMINE [Concomitant]
     Dosage: 5 MG
  5. EFFEXOR XR [Concomitant]
     Dosage: 300 MG
  6. LASIX [Concomitant]
     Dosage: 40 MG
  7. XALATAN [Concomitant]
     Dosage: I DROP AT NIGHT IN RIGHT AND LEFT EYE
  8. SALMETEROL [Concomitant]
     Dosage: 100 MCG
  9. VENTOLIN [Concomitant]
     Dosage: 200 MCG
  10. DIGOXIN [Concomitant]
     Dosage: 0.125 MG
  11. FLUTICASONE PROPIONATE [Concomitant]
     Dosage: 1000 MCG
  12. CRESTOR [Concomitant]
     Dosage: 20 MG

REACTIONS (4)
  - DYSPNOEA [None]
  - WEIGHT DECREASED [None]
  - PRODUCTIVE COUGH [None]
  - PLEURAL EFFUSION [None]
